FAERS Safety Report 4446678-8 (Version None)
Quarter: 2004Q3

REPORT INFORMATION
  Report Type: 
  Country: None (occurrence: None)
  Receive Date: 20040908
  Receipt Date: 20040901
  Transmission Date: 20050211
  Serious: Yes (Life-Threatening, Hospitalization, Other)
  Sender: FDA-Public Use
  Company Number: KII-1998-0002566

PATIENT
  Age: 38 Year
  Sex: Male

DRUGS (1)
  1. OXYCONTIN [Suspect]
     Indication: PAIN
     Dosage: 40 MG

REACTIONS (5)
  - ANOXIC ENCEPHALOPATHY [None]
  - LOSS OF CONSCIOUSNESS [None]
  - OVERDOSE [None]
  - PULMONARY FUNCTION TEST DECREASED [None]
  - RESPIRATORY DEPRESSION [None]
